FAERS Safety Report 11162307 (Version 1)
Quarter: 2015Q2

REPORT INFORMATION
  Report Type: Spontaneous
  Country: US (occurrence: US)
  Receive Date: 20150604
  Receipt Date: 20150604
  Transmission Date: 20150821
  Serious: No
  Sender: FDA-Public Use
  Company Number: US-SA-2014SA147938

PATIENT
  Age: 82 Year
  Sex: Female

DRUGS (3)
  1. SOLOSTAR [Concomitant]
     Active Substance: DEVICE
  2. LANTUS SOLOSTAR [Suspect]
     Active Substance: INSULIN GLARGINE
     Indication: TYPE 2 DIABETES MELLITUS
     Dosage: DOSE=32AM, 18PM
     Route: 065
  3. NOVOLOG [Concomitant]
     Active Substance: INSULIN ASPART

REACTIONS (1)
  - Arthritis [Not Recovered/Not Resolved]
